FAERS Safety Report 16565690 (Version 8)
Quarter: 2020Q1

REPORT INFORMATION
  Report Type: Spontaneous
  Country: US (occurrence: US)
  Receive Date: 20190712
  Receipt Date: 20200305
  Transmission Date: 20200409
  Serious: Yes (Other)
  Sender: FDA-Public Use
  Company Number: US-PFIZER INC-2019101605

PATIENT
  Age: 59 Year
  Sex: Male
  Weight: 102 kg

DRUGS (2)
  1. LYRICA [Suspect]
     Active Substance: PREGABALIN
     Indication: DIABETIC NEUROPATHY
     Dosage: 200 MG, 2X/DAY
     Route: 048
  2. LYRICA [Suspect]
     Active Substance: PREGABALIN
     Indication: NEUROPATHY PERIPHERAL
     Dosage: 300 MG, 2X/DAY [1 CAPSULE BY MOUTH 2 TIMES DAILY]
     Route: 048

REACTIONS (7)
  - Withdrawal syndrome [Unknown]
  - Tremor [Unknown]
  - Malaise [Unknown]
  - Drug ineffective [Unknown]
  - Confusional state [Unknown]
  - Feeling abnormal [Unknown]
  - Seizure [Unknown]
